FAERS Safety Report 13557237 (Version 1)
Quarter: 2017Q2

REPORT INFORMATION
  Report Type: Spontaneous
  Country: US (occurrence: US)
  Receive Date: 20170518
  Receipt Date: 20170518
  Transmission Date: 20170830
  Serious: Yes (Death, Hospitalization)
  Sender: FDA-Public Use
  Company Number: US-B.I. PHARMACEUTICALS,INC./RIDGEFIELD-2017-BI-027880

PATIENT
  Age: 83 Year
  Sex: Female

DRUGS (1)
  1. PRADAXA [Suspect]
     Active Substance: DABIGATRAN ETEXILATE MESYLATE
     Indication: PRODUCT USED FOR UNKNOWN INDICATION
     Route: 065

REACTIONS (7)
  - Retroperitoneal haematoma [Unknown]
  - Subdural haemorrhage [Unknown]
  - Epidural haemorrhage [Unknown]
  - Road traffic accident [Fatal]
  - Subarachnoid haemorrhage [Unknown]
  - Rib fracture [Unknown]
  - Sacroiliac fracture [Unknown]
